FAERS Safety Report 4553194-1 (Version None)
Quarter: 2005Q1

REPORT INFORMATION
  Report Type: 
  Country: None (occurrence: None)
  Receive Date: 20050114
  Receipt Date: 20041209
  Transmission Date: 20050727
  Serious: Yes (Life-Threatening, Hospitalization)
  Sender: FDA-Public Use
  Company Number: JP-BRISTOL-MYERS SQUIBB COMPANY-12790580

PATIENT
  Age: 70 Year
  Sex: Female

DRUGS (7)
  1. PARAPLATIN [Suspect]
     Indication: UTERINE CANCER
     Route: 042
     Dates: start: 20020129, end: 20020129
  2. TAXOL [Suspect]
     Indication: UTERINE CANCER
     Route: 042
     Dates: start: 20020129, end: 20020129
  3. PIRARUBICIN [Suspect]
     Route: 042
     Dates: start: 20020128, end: 20020128
  4. DEXAMETHASONE SODIUM PHOSPHATE [Concomitant]
     Route: 042
     Dates: start: 20020128, end: 20020129
  5. RANITIDINE HCL [Concomitant]
     Route: 042
     Dates: start: 20020129, end: 20020129
  6. GRANISETRON HCL [Concomitant]
     Route: 042
     Dates: start: 20020129, end: 20020129
  7. DIPHENHYDRAMINE HCL [Concomitant]
     Route: 048
     Dates: start: 20020129, end: 20020129

REACTIONS (7)
  - DISSEMINATED INTRAVASCULAR COAGULATION [None]
  - NEUTROPENIA [None]
  - PANCYTOPENIA [None]
  - PNEUMONIA [None]
  - RESPIRATORY FAILURE [None]
  - SEPSIS [None]
  - THROMBOCYTOPENIA [None]
